FAERS Safety Report 5647265-6 (Version None)
Quarter: 2008Q1

REPORT INFORMATION
  Report Type: 
  Country: None (occurrence: None)
  Receive Date: 20080303
  Receipt Date: 20080222
  Transmission Date: 20080703
  Serious: Yes (Other)
  Sender: FDA-Public Use
  Company Number: US-ALLERGAN-0802132US

PATIENT
  Sex: Female

DRUGS (2)
  1. BOTOX COSMETIC [Suspect]
     Indication: SKIN WRINKLING
     Dosage: 35 UNITS, SINGLE
     Route: 030
     Dates: start: 20080221, end: 20080221
  2. JUVEDERM [Suspect]
     Indication: SKIN WRINKLING
     Route: 023
     Dates: start: 20080221, end: 20080221

REACTIONS (4)
  - DYSPNOEA [None]
  - HEART RATE INCREASED [None]
  - MIGRAINE [None]
  - SWELLING FACE [None]
